FAERS Safety Report 5713716-1 (Version None)
Quarter: 2008Q2

REPORT INFORMATION
  Report Type: 
  Country: None (occurrence: None)
  Receive Date: 20080421
  Receipt Date: 20080411
  Transmission Date: 20081010
  Serious: Yes (Other)
  Sender: FDA-Public Use
  Company Number: 2008009166

PATIENT
  Age: 40 Year
  Sex: Female
  Weight: 63.5 kg

DRUGS (5)
  1. ZYRTEC [Suspect]
     Indication: HYPERSENSITIVITY
     Dosage: 10 MG ONCE DAILY,ORAL
     Route: 048
     Dates: start: 20080402, end: 20080410
  2. KLONOPIN [Concomitant]
  3. ADVAIR DISKUS 100/50 [Concomitant]
  4. ASTELIN [Concomitant]
  5. LAMICTAL [Concomitant]

REACTIONS (4)
  - DEPRESSION [None]
  - DISTURBANCE IN ATTENTION [None]
  - SOMNOLENCE [None]
  - SUICIDAL BEHAVIOUR [None]
